FAERS Safety Report 8476545 (Version 2)
Quarter: 2012Q4

REPORT INFORMATION
  Report Type: Spontaneous
  Country: FR (occurrence: None)
  Receive Date: 20120316
  Receipt Date: 20120817
  Transmission Date: 20130627
  Serious: Yes (Life-Threatening, Hospitalization)
  Sender: FDA-Public Use
  Company Number: DSA_55334_2012

PATIENT
  Age: 60 Year
  Sex: Female

DRUGS (14)
  1. ENALAPRIL MALEATE AND HYDROCHLOROTHIAZIDE [Suspect]
     Indication: HYPERTENSION
     Dosage: (20 MG-12.5 MG/DAILY ORAL)
     Route: 048
     Dates: end: 20120107
  2. SITAGLIPTIN PHOSPHATE [Suspect]
     Indication: TYPE 2 DIABETES MELLITUS
     Dosage: (100 MG QD ORAL)
     Route: 048
     Dates: end: 20120107
  3. METFORMIN HYDROCHLORIDE [Suspect]
     Indication: TYPE 2 DIABETES MELLITUS
     Dosage: (1 G QID ORAL)
     Route: 048
     Dates: end: 20120107
  4. VALSARTAN [Suspect]
     Indication: PRODUCT USED FOR UNKNOWN INDICATION
     Dosage: (160 MG/DAILY ORAL)
     Route: 048
     Dates: end: 20120107
  5. FUROSEMIDE [Suspect]
     Indication: PRODUCT USED FOR UNKNOWN INDICATION
     Dosage: (40 MG/DAILY ORAL), (20 MG/DAILY ORAL), (DF ORAL)
     Route: 048
     Dates: start: 20120102, end: 20120107
  6. FUROSEMIDE [Suspect]
     Indication: PRODUCT USED FOR UNKNOWN INDICATION
     Dosage: (40 MG/DAILY ORAL), (20 MG/DAILY ORAL), (DF ORAL)
     Route: 048
     Dates: end: 20120101
  7. FUROSEMIDE [Suspect]
     Indication: PRODUCT USED FOR UNKNOWN INDICATION
     Dosage: (40 MG/DAILY ORAL), (20 MG/DAILY ORAL), (DF ORAL)
     Route: 048
     Dates: start: 20120111
  8. POTASSIUM CHLORIDE [Suspect]
     Indication: PRODUCT USED FOR UNKNOWN INDICATION
     Dosage: (1 DOSE DAILY ORAL), (DF ORAL)
     Route: 048
     Dates: end: 20120107
  9. POTASSIUM CHLORIDE [Suspect]
     Indication: PRODUCT USED FOR UNKNOWN INDICATION
     Dosage: (1 DOSE DAILY ORAL), (DF ORAL)
     Route: 048
     Dates: end: 20120117
  10. LERCANIDIPINE [Suspect]
     Indication: PRODUCT USED FOR UNKNOWN INDICATION
     Dosage: (20 MG/DAILY ORAL) (DF ORAL)
     Route: 048
     Dates: end: 20120107
  11. LERCANIDIPINE [Suspect]
     Indication: PRODUCT USED FOR UNKNOWN INDICATION
     Dosage: (20 MG/DAILY ORAL) (DF ORAL)
     Route: 048
     Dates: start: 20120115
  12. VOLTAREN [Suspect]
     Indication: PRODUCT USED FOR UNKNOWN INDICATION
     Dosage: (75 MG/DAILY ORAL)
     Route: 048
     Dates: end: 20120107
  13. CO-RENITED (CO-RENITEC-ENALAPRIL MALEATGE/HCTZ) [Suspect]
     Indication: HYPERTENSION
     Route: 048
     Dates: end: 20120107
  14. JANUVIA [Suspect]
     Indication: TYPE 2 DIABETES MELLITUS
     Route: 048
     Dates: end: 20120107

REACTIONS (7)
  - Hypoglycaemia [None]
  - Coma [None]
  - Cardio-respiratory arrest [None]
  - Renal failure acute [None]
  - Dialysis [None]
  - Hyperkalaemia [None]
  - Lactic acidosis [None]
